FAERS Safety Report 6747978-9 (Version None)
Quarter: 2010Q2

REPORT INFORMATION
  Report Type: 
  Country: None (occurrence: None)
  Receive Date: 20100528
  Receipt Date: 20100521
  Transmission Date: 20101027
  Serious: Yes (Death)
  Sender: FDA-Public Use
  Company Number: MY-MERCK-1005MYS00004

PATIENT
  Age: 66 Year
  Sex: Male

DRUGS (6)
  1. PRIMAXIN [Suspect]
     Indication: NOSOCOMIAL INFECTION
     Route: 065
     Dates: start: 20090329
  2. CALCIUM (UNSPECIFIED) [Concomitant]
     Route: 065
  3. ESOMEPRAZOLE [Concomitant]
     Route: 065
  4. MEROPENEM [Concomitant]
     Route: 065
  5. TRANEXAMIC ACID [Concomitant]
     Route: 065
  6. VANCOMYCIN [Concomitant]
     Route: 065

REACTIONS (1)
  - EPILEPSY [None]
